FAERS Safety Report 4891974-3 (Version None)
Quarter: 2006Q1

REPORT INFORMATION
  Report Type: 
  Country: None (occurrence: None)
  Receive Date: 20060124
  Receipt Date: 20060124
  Transmission Date: 20060701
  Serious: Yes (Hospitalization)
  Sender: FDA-Public Use
  Company Number: None

PATIENT
  Sex: Female

DRUGS (17)
  1. THYMOGLOBULIN [Suspect]
     Indication: TRANSPLANT REJECTION
     Dosage: 184 MG , QD, IV
     Route: 042
     Dates: start: 20050916, end: 20050922
  2. METHYLPREDNISOLONE [Concomitant]
  3. SSI [Concomitant]
  4. TACROLIMUS [Concomitant]
  5. MYCOPHENOLATE [Concomitant]
  6. ESCITALOPRAM OXALATE [Concomitant]
  7. BACTRIM DS [Concomitant]
  8. M.V.I. [Concomitant]
  9. LANSOPRAZOLE [Concomitant]
  10. FOLIC ACID [Concomitant]
  11. MAGNESIUM OXIDE [Concomitant]
  12. ASPIRIN [Concomitant]
  13. ATORVASTATIN CALCIUM [Concomitant]
  14. GLIPIZIDE [Concomitant]
  15. BENDRYL [Concomitant]
  16. TYLENOL-500 [Concomitant]
  17. GANCICLOVIR [Concomitant]

REACTIONS (5)
  - PAIN [None]
  - PALMAR ERYTHEMA [None]
  - PRURITUS [None]
  - RASH [None]
  - WHITE BLOOD CELL COUNT INCREASED [None]
